FAERS Safety Report 10593612 (Version 1)
Quarter: 2014Q4

REPORT INFORMATION
  Report Type: Spontaneous
  Country: US (occurrence: US)
  Receive Date: 20141119
  Receipt Date: 20141119
  Transmission Date: 20150529
  Serious: Yes (Other)
  Sender: FDA-Public Use
  Company Number: US-BAYER-2014-170732

PATIENT
  Age: 76 Year
  Sex: Female
  Weight: 66 kg

DRUGS (6)
  1. BAYER GENUINE ASPIRIN [Suspect]
     Active Substance: ASPIRIN
     Dosage: 2 DF, PRN
     Route: 048
  2. COENZYME Q10 [Concomitant]
     Active Substance: UBIDECARENONE
  3. LUTEIN [Concomitant]
     Active Substance: LUTEIN
  4. VITAMIN D [Concomitant]
     Active Substance: CHOLECALCIFEROL
  5. FISH OIL [Concomitant]
     Active Substance: FISH OIL
  6. ALEVE [Suspect]
     Active Substance: NAPROXEN SODIUM
     Indication: BACK PAIN
     Dosage: 1 DF, PRN
     Route: 048
     Dates: start: 2013, end: 20141112

REACTIONS (2)
  - Abdominal pain upper [Recovered/Resolved]
  - Gastric ulcer [Recovered/Resolved]
